FAERS Safety Report 6929924-8 (Version None)
Quarter: 2010Q3

REPORT INFORMATION
  Report Type: 
  Country: None (occurrence: None)
  Receive Date: 20100817
  Receipt Date: 20100817
  Transmission Date: 20110219
  Serious: Yes (Other)
  Sender: FDA-Public Use
  Company Number: None

PATIENT
  Age: 50 Year
  Sex: Male
  Weight: 60.782 kg

DRUGS (2)
  1. RAPAFLO [Suspect]
     Indication: CONVULSION
     Dates: start: 20100628
  2. RALTEGRAVIR 400MG 2XDAY [Suspect]
     Dates: start: 20100708

REACTIONS (2)
  - CONVULSION [None]
  - DRUG INTERACTION [None]
